FAERS Safety Report 15131562 (Version 1)
Quarter: 2018Q3

REPORT INFORMATION
  Report Type: Spontaneous
  Country: US (occurrence: US)
  Receive Date: 20180711
  Receipt Date: 20180711
  Transmission Date: 20181010
  Serious: Yes (Other)
  Sender: FDA-Public Use
  Company Number: US-MEDICURE INC.-2051779

PATIENT
  Age: 46 Year
  Sex: Male

DRUGS (7)
  1. AGGRASTAT [Suspect]
     Active Substance: TIROFIBAN HYDROCHLORIDE
     Indication: ANTIPLATELET THERAPY
     Route: 040
  2. HEPARIN [Concomitant]
     Active Substance: HEPARIN SODIUM
  3. BRILINTA [Concomitant]
     Active Substance: TICAGRELOR
  4. THROMBIN HUMAN. [Concomitant]
     Active Substance: THROMBIN HUMAN
     Route: 003
  5. AGGRASTAT [Suspect]
     Active Substance: TIROFIBAN HYDROCHLORIDE
     Route: 041
  6. BRILINTA [Concomitant]
     Active Substance: TICAGRELOR
  7. ASPIRIN. [Concomitant]
     Active Substance: ASPIRIN

REACTIONS (2)
  - Catheter site haemorrhage [Recovered/Resolved]
  - Vascular compression therapy [Recovered/Resolved]
